FAERS Safety Report 4390301-8 (Version None)
Quarter: 2004Q2

REPORT INFORMATION
  Report Type: 
  Country: None (occurrence: None)
  Receive Date: 20040630
  Receipt Date: 20040614
  Transmission Date: 20050107
  Serious: Yes (Hospitalization)
  Sender: FDA-Public Use
  Company Number: DSA_24568_2004

PATIENT
  Age: 34 Year
  Sex: Female

DRUGS (3)
  1. LORAZEPAM [Suspect]
     Dosage: 1 MG Q DAY PO
     Route: 048
     Dates: start: 20031001
  2. FLUANXOL [Suspect]
     Dosage: 50 MG TID PO
     Route: 048
     Dates: start: 20031001
  3. TEGRETOL [Suspect]
     Dosage: 200 MG TID PO
     Route: 048
     Dates: start: 20031101

REACTIONS (5)
  - ABDOMINAL PAIN UPPER [None]
  - ASTHENIA [None]
  - BRADYCARDIA [None]
  - HYPERKALAEMIA [None]
  - HYPONATRAEMIA [None]
